FAERS Safety Report 19200506 (Version 1)
Quarter: 2021Q2

REPORT INFORMATION
  Report Type: Spontaneous
  Country: US (occurrence: US)
  Receive Date: 20210430
  Receipt Date: 20210430
  Transmission Date: 20210717
  Serious: Yes (Other)
  Sender: FDA-Public Use
  Company Number: None

PATIENT
  Sex: Female

DRUGS (2)
  1. BLISTEX [Suspect]
     Active Substance: BENZOCAINE
  2. ABREVA [Suspect]
     Active Substance: DOCOSANOL

REACTIONS (1)
  - Therapy non-responder [None]
